FAERS Safety Report 11330300 (Version 6)
Quarter: 2015Q3

REPORT INFORMATION
  Report Type: Spontaneous
  Country: US (occurrence: US)
  Receive Date: 20150803
  Receipt Date: 20150924
  Transmission Date: 20151125
  Serious: Yes (Hospitalization, Other)
  Sender: FDA-Public Use
  Company Number: US-AMGEN-USASL2015075993

PATIENT
  Age: 50 Year
  Sex: Female

DRUGS (5)
  1. ENBREL [Suspect]
     Active Substance: ETANERCEPT
     Dosage: UNK
     Route: 065
  2. METHOTREXATE [Suspect]
     Active Substance: METHOTREXATE
     Indication: PRODUCT USED FOR UNKNOWN INDICATION
     Dosage: UNK
     Route: 065
  3. PREDNISONE. [Suspect]
     Active Substance: PREDNISONE
     Indication: BUTTERFLY RASH
  4. PREDNISONE. [Suspect]
     Active Substance: PREDNISONE
     Indication: PHOTOSENSITIVITY REACTION
     Dosage: UNK
     Route: 065
  5. ENBREL [Suspect]
     Active Substance: ETANERCEPT
     Indication: RHEUMATOID ARTHRITIS
     Dosage: 25 MG, 2 TIMES/WK
     Route: 065
     Dates: start: 201210, end: 2015

REACTIONS (12)
  - Lupus-like syndrome [Unknown]
  - Tachycardia [Unknown]
  - Butterfly rash [Unknown]
  - Nerve compression [Unknown]
  - Drug dose omission [Unknown]
  - Suicidal ideation [Unknown]
  - Photosensitivity reaction [Unknown]
  - Anxiety [Unknown]
  - Frustration [Unknown]
  - Intervertebral disc protrusion [Unknown]
  - Nausea [Recovered/Resolved]
  - Alopecia [Unknown]

NARRATIVE: CASE EVENT DATE: 201507
